FAERS Safety Report 4441164-3 (Version None)
Quarter: 2004Q3

REPORT INFORMATION
  Report Type: 
  Country: None (occurrence: None)
  Receive Date: 20040728
  Receipt Date: 20040423
  Transmission Date: 20050211
  Serious: No
  Sender: FDA-Public Use
  Company Number: USA040363062

PATIENT
  Age: 9 Year
  Sex: Male
  Weight: 45 kg

DRUGS (5)
  1. STRATTERA [Suspect]
     Indication: DISTURBANCE IN ATTENTION
     Dosage: 40 MG/1 DAY
     Dates: start: 20030901
  2. STRATTERA [Suspect]
     Indication: LEARNING DISABILITY
     Dosage: 40 MG/1 DAY
     Dates: start: 20030901
  3. SINGULAIR [Concomitant]
  4. ZYRTEC [Concomitant]
  5. DURATUSS [Concomitant]

REACTIONS (1)
  - SUICIDAL IDEATION [None]
